FAERS Safety Report 15313850 (Version 6)
Quarter: 2023Q1

REPORT INFORMATION
  Report Type: Report from Study
  Country: US (occurrence: US)
  Receive Date: 20180824
  Receipt Date: 20230209
  Transmission Date: 20230417
  Serious: Yes (Hospitalization, Other)
  Sender: FDA-Public Use
  Company Number: US-ASTELLAS-2018US017900

PATIENT
  Sex: Male
  Weight: 127 kg

DRUGS (4)
  1. ENZALUTAMIDE [Suspect]
     Active Substance: ENZALUTAMIDE
     Indication: Prostate cancer
     Route: 048
     Dates: start: 2017
  2. ENZALUTAMIDE [Suspect]
     Active Substance: ENZALUTAMIDE
     Route: 048
     Dates: end: 20180818
  3. ENZALUTAMIDE [Suspect]
     Active Substance: ENZALUTAMIDE
     Route: 048
  4. ENZALUTAMIDE [Suspect]
     Active Substance: ENZALUTAMIDE
     Indication: Product used for unknown indication
     Route: 065
     Dates: start: 20210901

REACTIONS (5)
  - Transient ischaemic attack [Unknown]
  - Upper limb fracture [Unknown]
  - Weight decreased [Unknown]
  - Hypoacusis [Unknown]
  - Product availability issue [Unknown]

NARRATIVE: CASE EVENT DATE: 20170101
